FAERS Safety Report 12385136 (Version 2)
Quarter: 2017Q1

REPORT INFORMATION
  Report Type: Spontaneous
  Country: US (occurrence: US)
  Receive Date: 20160519
  Receipt Date: 20170113
  Transmission Date: 20170428
  Serious: Yes (Hospitalization, Other)
  Sender: FDA-Public Use
  Company Number: US-BAYER-2016-092425

PATIENT
  Age: 31 Year
  Sex: Female
  Weight: 77.98 kg

DRUGS (2)
  1. ZYRTEC [Concomitant]
     Active Substance: CETIRIZINE HYDROCHLORIDE
     Indication: MULTIPLE ALLERGIES
     Dosage: UNK
  2. MIRENA [Suspect]
     Active Substance: LEVONORGESTREL
     Indication: CONTRACEPTION
     Dosage: 20 MCG/24HR, CONT
     Route: 015
     Dates: start: 20081129

REACTIONS (7)
  - Uterine perforation [None]
  - Dyspareunia [None]
  - Menstruation irregular [None]
  - Ovarian cyst [None]
  - Menorrhagia [None]
  - Depression [None]
  - Device use issue [None]

NARRATIVE: CASE EVENT DATE: 2014
